FAERS Safety Report 25140559 (Version 1)
Quarter: 2025Q1

REPORT INFORMATION
  Report Type: Report from Study
  Country: ES (occurrence: ES)
  Receive Date: 20250331
  Receipt Date: 20250331
  Transmission Date: 20250409
  Serious: Yes (Life-Threatening, Hospitalization, Other)
  Sender: MYLAN
  Company Number: ES-JNJFOC-20250213034

PATIENT
  Age: 64 Year
  Sex: Male
  Weight: 62.8 kg

DRUGS (11)
  1. LENALIDOMIDE [Suspect]
     Active Substance: LENALIDOMIDE
     Indication: Plasma cell myeloma
  2. DARATUMUMAB [Suspect]
     Active Substance: DARATUMUMAB
     Indication: Plasma cell myeloma
     Dates: start: 20250103, end: 20250103
  3. VELCADE [Suspect]
     Active Substance: BORTEZOMIB
     Indication: Plasma cell myeloma
  4. DEXAMETHASONE [Suspect]
     Active Substance: DEXAMETHASONE
     Indication: Plasma cell myeloma
  5. CHOLECALCIFEROL [Concomitant]
     Active Substance: CHOLECALCIFEROL
     Indication: Prophylaxis
     Dosage: 25000 INTERNATIONAL UNIT, Q2W (0.5 MONTH)
     Dates: start: 20241223
  6. TAPENTADOL [Concomitant]
     Active Substance: TAPENTADOL
     Indication: Prophylaxis
     Dosage: 25 MILLIGRAM, BID (0.5 DAY)
     Dates: start: 20241204
  7. DIAZEPAM [Concomitant]
     Active Substance: DIAZEPAM
     Indication: Prophylaxis
     Dosage: 5 MILLIGRAM, QD
     Dates: start: 20241028
  8. DEXKETOPROFEN [Concomitant]
     Active Substance: DEXKETOPROFEN
     Indication: Prophylaxis
     Dosage: 25 MILLIGRAM, TID (0.33 DAY)
     Dates: start: 20241016
  9. COVID-19 vaccine [Concomitant]
     Indication: Immunisation
     Dates: start: 20210716, end: 20210716
  10. COVID-19 vaccine [Concomitant]
     Dates: start: 20210806, end: 20210806
  11. COVID-19 vaccine [Concomitant]
     Dates: start: 20220225, end: 20220225

REACTIONS (3)
  - Emphysema [Recovering/Resolving]
  - Pneumonia [Unknown]
  - Pyrexia [Recovered/Resolved]

NARRATIVE: CASE EVENT DATE: 20250126
